FAERS Safety Report 19945445 (Version 3)
Quarter: 2021Q4

REPORT INFORMATION
  Report Type: Report from Study
  Country: CN (occurrence: CN)
  Receive Date: 20211012
  Receipt Date: 20211229
  Transmission Date: 20220303
  Serious: Yes (Hospitalization)
  Sender: FDA-Public Use
  Company Number: CN-DSJP-DSE-2021-133371

PATIENT
  Age: 79 Year
  Sex: Male
  Weight: 67 kg

DRUGS (6)
  1. EDOXABAN [Suspect]
     Active Substance: EDOXABAN
     Indication: Atrial fibrillation
     Dosage: 30 MG, QD
     Route: 048
     Dates: start: 20210624, end: 20211007
  2. INSULIN NOS [Concomitant]
     Active Substance: INSULIN NOS
     Indication: Diabetes mellitus
     Dosage: UNK
  3. UNSPECIFIED INGREDIENT [Concomitant]
     Active Substance: UNSPECIFIED INGREDIENT
     Indication: Hypertension
     Dosage: UNK
  4. INSULIN ASPART [Concomitant]
     Active Substance: INSULIN ASPART
     Indication: Diabetes mellitus
     Dosage: 26 IU, BID
     Route: 058
     Dates: start: 201501
  5. METHIONINE [Concomitant]
     Active Substance: METHIONINE
     Indication: Hyperthyroidism
     Dosage: 5 MG, QD
     Route: 048
     Dates: start: 198501
  6. NIFEDIPINE [Concomitant]
     Active Substance: NIFEDIPINE
     Indication: Hypertension
     Dosage: 30 MG, BID
     Route: 048
     Dates: start: 202106

REACTIONS (6)
  - Deep vein thrombosis [Recovered/Resolved]
  - Cardiac failure [Recovering/Resolving]
  - Anaemia [Recovered/Resolved]
  - Oedema [Recovering/Resolving]
  - Thrombosis [Recovering/Resolving]
  - May-Thurner syndrome [Recovering/Resolving]

NARRATIVE: CASE EVENT DATE: 20211007
